FAERS Safety Report 11329211 (Version 2)
Quarter: 2015Q3

REPORT INFORMATION
  Report Type: Spontaneous
  Country: DE (occurrence: DE)
  Receive Date: 20150803
  Receipt Date: 20150902
  Transmission Date: 20151125
  Serious: Yes (Other)
  Sender: FDA-Public Use
  Company Number: DE-TAKEDA-2015TJP014076

PATIENT
  Age: 46 Year
  Sex: Male

DRUGS (3)
  1. BRINTELLIX [Suspect]
     Active Substance: VORTIOXETINE HYDROBROMIDE
     Indication: LISTLESS
  2. BRINTELLIX [Suspect]
     Active Substance: VORTIOXETINE HYDROBROMIDE
     Indication: DEPRESSION
     Dosage: 10 MG, UNK
     Route: 048
     Dates: start: 20150529, end: 20150710
  3. QUILONUM [Concomitant]
     Active Substance: LITHIUM CARBONATE
     Indication: CYCLOTHYMIC DISORDER
     Dosage: UNK
     Route: 048
     Dates: start: 2012, end: 20150722

REACTIONS (3)
  - Dizziness [Recovering/Resolving]
  - Photopsia [Recovering/Resolving]
  - Hypoaesthesia [Recovering/Resolving]

NARRATIVE: CASE EVENT DATE: 20150529
